FAERS Safety Report 5084348-6 (Version None)
Quarter: 2006Q3

REPORT INFORMATION
  Report Type: 
  Country: None (occurrence: None)
  Receive Date: 20060817
  Receipt Date: 20060817
  Transmission Date: 20061208
  Serious: No
  Sender: FDA-Public Use
  Company Number: None

PATIENT
  Sex: Female

DRUGS (2)
  1. LIDOCAINE HCL [Suspect]
     Indication: INDUCTION OF ANAESTHESIA
     Dosage: 50ML  STAT IV BOLUS
     Route: 040
     Dates: start: 20060815, end: 20060815
  2. LIDOCAINE HCL [Suspect]
     Indication: SURGERY
     Dosage: 50ML  STAT IV BOLUS
     Route: 040
     Dates: start: 20060815, end: 20060815

REACTIONS (1)
  - DRUG INEFFECTIVE [None]
